FAERS Safety Report 19117441 (Version 1)
Quarter: 2021Q2

REPORT INFORMATION
  Report Type: Report from Study
  Country: BR (occurrence: BR)
  Receive Date: 20210409
  Receipt Date: 20210409
  Transmission Date: 20210717
  Serious: Yes (Other)
  Sender: FDA-Public Use
  Company Number: BR-IPSEN BIOPHARMACEUTICALS, INC.-2020-11891

PATIENT
  Age: 68 Year
  Sex: Female
  Weight: 72 kg

DRUGS (5)
  1. SOMATULINE AUTOGEL [Suspect]
     Active Substance: LANREOTIDE ACETATE
     Indication: OFF LABEL USE
  2. METFORMIN [Concomitant]
     Active Substance: METFORMIN HYDROCHLORIDE
     Indication: DIABETES MELLITUS
     Dosage: 2 TABLETS EACH DAY
     Route: 048
     Dates: start: 2016
  3. SOMATULINE AUTOGEL [Suspect]
     Active Substance: LANREOTIDE ACETATE
     Indication: BRAIN NEOPLASM
     Route: 030
     Dates: start: 2009
  4. CABERGOLINE. [Concomitant]
     Active Substance: CABERGOLINE
     Indication: BRAIN NEOPLASM
     Dosage: 4 TIMES EACH WEEK
     Route: 048
     Dates: start: 2009
  5. CAPTOPRIL. [Concomitant]
     Active Substance: CAPTOPRIL
     Indication: HYPERTENSION
     Dosage: 2 TIMES EACH DAY
     Route: 048
     Dates: start: 2016

REACTIONS (10)
  - Incorrect route of product administration [Unknown]
  - Arthralgia [Recovering/Resolving]
  - Myalgia [Recovered/Resolved]
  - Osteoarthritis [Unknown]
  - Off label use [Unknown]
  - Fatigue [Recovered/Resolved]
  - Pain in extremity [Not Recovered/Not Resolved]
  - Bone pain [Recovered/Resolved]
  - COVID-19 [Recovered/Resolved]
  - Back pain [Unknown]

NARRATIVE: CASE EVENT DATE: 2009
